FAERS Safety Report 6742061-0 (Version None)
Quarter: 2010Q2

REPORT INFORMATION
  Report Type: 
  Country: None (occurrence: None)
  Receive Date: 20100524
  Receipt Date: 20100510
  Transmission Date: 20101027
  Serious: Yes (Hospitalization)
  Sender: FDA-Public Use
  Company Number: 012119

PATIENT
  Age: 75 Year
  Sex: Male

DRUGS (8)
  1. ISOSORBIDE MONONITRATE [Suspect]
     Dosage: 6,000 MG ORAL
     Route: 048
  2. SOTALOL HCL [Suspect]
     Dosage: 7,200 MG ORAL
     Route: 048
  3. FUROSEMIDE [Suspect]
     Dosage: 800 MG ORAL
     Route: 048
  4. DIGOXIN [Suspect]
     Dosage: 7,125 MG ORAL
     Route: 048
  5. ACENOCOUMAROL (ACENOCOUMAROL) [Suspect]
     Dosage: 98 MG ORAL
     Route: 048
  6. ATORVASTATIN (ATORVASTATINE) [Suspect]
     Dosage: 1,200 MG ORAL
     Route: 048
  7. PERINDORPIL (PERINDOPRIL) [Suspect]
     Dosage: 200 MG ORAL
     Route: 048
  8. AMLODIPINE [Suspect]
     Dosage: 300 MG ORAL

REACTIONS (8)
  - BLOOD CREATININE INCREASED [None]
  - CARDIOGENIC SHOCK [None]
  - DRUG INTERACTION [None]
  - DRUG LEVEL FLUCTUATING [None]
  - ELECTROCARDIOGRAM QRS COMPLEX PROLONGED [None]
  - ELECTROCARDIOGRAM QT PROLONGED [None]
  - HAEMODIALYSIS [None]
  - HEART RATE DECREASED [None]
